FAERS Safety Report 14559850 (Version 1)
Quarter: 2018Q1

REPORT INFORMATION
  Report Type: Spontaneous
  Country: US (occurrence: US)
  Receive Date: 20180220
  Receipt Date: 20180220
  Transmission Date: 20180509
  Serious: No
  Sender: FDA-Public Use
  Company Number: None

PATIENT
  Age: 58 Year
  Sex: Female
  Weight: 73.8 kg

DRUGS (6)
  1. BIOTIN [Concomitant]
     Active Substance: BIOTIN
  2. VITAMIN D [Concomitant]
     Active Substance: CHOLECALCIFEROL
  3. SCOPOLAMINE TRANSDERMAL SYSTEM 1MG/3DAYS [Suspect]
     Active Substance: SCOPOLAMINE
     Indication: MOTION SICKNESS
     Dosage: QUANTITY:1 PATCH(ES);OTHER FREQUENCY:3 DAYS;?
     Route: 062
     Dates: start: 20180215, end: 20180217
  4. FLAXSEED [Concomitant]
     Active Substance: FLAX SEED
  5. ALLEGRA [Concomitant]
     Active Substance: FEXOFENADINE HYDROCHLORIDE
  6. MONTELUKAST [Concomitant]
     Active Substance: MONTELUKAST SODIUM

REACTIONS (2)
  - Confusional state [None]
  - Amnesia [None]

NARRATIVE: CASE EVENT DATE: 20180217
